FAERS Safety Report 8185630-6 (Version None)
Quarter: 2012Q1

REPORT INFORMATION
  Report Type: 
  Country: None (occurrence: None)
  Receive Date: 20120305
  Receipt Date: 20120225
  Transmission Date: 20120608
  Serious: No
  Sender: FDA-Public Use
  Company Number: US-BAYER-2012-019444

PATIENT

DRUGS (2)
  1. ACETAMINOPHEN [Concomitant]
     Dosage: 1 G, UNK
  2. ALEVE (CAPLET) [Suspect]
     Indication: HEADACHE
     Dosage: 2 DF, ONCE
     Route: 048
     Dates: start: 20120224

REACTIONS (1)
  - HEADACHE [None]
